FAERS Safety Report 15748643 (Version 1)
Quarter: 2018Q4

REPORT INFORMATION
  Report Type: Report from Study
  Country: AU (occurrence: AU)
  Receive Date: 20181221
  Receipt Date: 20181221
  Transmission Date: 20190205
  Serious: Yes (Hospitalization, Other)
  Sender: FDA-Public Use
  Company Number: AU-REGENERON PHARMACEUTICALS, INC.-2018-28297

PATIENT

DRUGS (1)
  1. EYLEA [Suspect]
     Active Substance: AFLIBERCEPT
     Indication: NEOVASCULAR AGE-RELATED MACULAR DEGENERATION
     Dosage: EVERY 6-8 WEEKS, RIGHT EYE
     Route: 031

REACTIONS (7)
  - Infection [Unknown]
  - Intra-ocular injection [Unknown]
  - Injection site discomfort [Recovered/Resolved]
  - Eye pain [Unknown]
  - Inflammation [Unknown]
  - Cardiac failure [Unknown]
  - Vomiting [Unknown]
